FAERS Safety Report 8782866 (Version 2)
Quarter: 2012Q4

REPORT INFORMATION
  Report Type: Report from Study
  Country: GB (occurrence: GB)
  Receive Date: 20120913
  Receipt Date: 20120924
  Transmission Date: 20130627
  Serious: Yes (Hospitalization)
  Sender: FDA-Public Use
  Company Number: GB-GLAXOSMITHKLINE-B0830211A

PATIENT
  Age: 53 Year
  Sex: Male

DRUGS (4)
  1. LAPATINIB [Suspect]
     Indication: ADENOCARCINOMA
     Dosage: 250MG Per day
     Route: 048
     Dates: start: 20120814
  2. CAPECITABINE [Suspect]
     Indication: ADENOCARCINOMA
     Dosage: 1650MG Twice per day
     Route: 048
     Dates: start: 20120824
  3. OMEPRAZOLE [Concomitant]
     Dosage: 20MG Twice per day
     Route: 048
     Dates: start: 2012
  4. COCODAMOL [Concomitant]
     Dosage: 100MG As required
     Route: 048
     Dates: start: 1998

REACTIONS (2)
  - Dysphagia [Not Recovered/Not Resolved]
  - Dyspepsia [Not Recovered/Not Resolved]
